FAERS Safety Report 21971320 (Version 1)
Quarter: 2023Q1

REPORT INFORMATION
  Report Type: Spontaneous
  Country: US (occurrence: US)
  Receive Date: 20230209
  Receipt Date: 20230209
  Transmission Date: 20230418
  Serious: No
  Sender: FDA-Public Use
  Company Number: US-AMGEN-USASP2022228636

PATIENT
  Sex: Male

DRUGS (10)
  1. OTEZLA [Suspect]
     Active Substance: APREMILAST
     Indication: Psoriasis
     Dosage: 30 MILLIGRAM, BID
     Route: 048
     Dates: start: 202004, end: 202010
  2. BIOTIN [Concomitant]
     Active Substance: BIOTIN
     Dosage: 500 MICROGRAM
  3. Calcium citrate magnesium and zinc with vitamin d3 [Concomitant]
     Dosage: UNK
  4. ASPIRIN [Concomitant]
     Active Substance: ASPIRIN
     Dosage: 81 MILLIGRAM
  5. ATORVASTATIN CALCIUM [Concomitant]
     Active Substance: ATORVASTATIN CALCIUM
     Dosage: 20 MILLIGRAM
  6. Carvedilol 1a [Concomitant]
     Dosage: 6.25 MILLIGRAM
  7. FAMOTIDINE [Concomitant]
     Active Substance: FAMOTIDINE
     Dosage: 20 MILLIGRAM
  8. GABAPENTIN [Concomitant]
     Active Substance: GABAPENTIN
     Dosage: 300 MILLIGRAM
  9. LISINOPRIL [Concomitant]
     Active Substance: LISINOPRIL
     Dosage: 2.51 MILLIGRAM
  10. TESTOSTERONE [Concomitant]
     Active Substance: TESTOSTERONE
     Dosage: 1.62 PERCENT

REACTIONS (1)
  - Blood pressure increased [Recovered/Resolved]

NARRATIVE: CASE EVENT DATE: 20200101
